FAERS Safety Report 14385411 (Version 3)
Quarter: 2018Q4

REPORT INFORMATION
  Report Type: Spontaneous
  Country: US (occurrence: US)
  Receive Date: 20180115
  Receipt Date: 20181127
  Transmission Date: 20190204
  Serious: Yes (Other)
  Sender: FDA-Public Use
  Company Number: US-SA-2016SA232651

PATIENT
  Age: 62 Year
  Sex: Female
  Weight: 104.3 kg

DRUGS (16)
  1. NEOSAR [Concomitant]
     Active Substance: CYCLOPHOSPHAMIDE
  2. AFINITOR [Concomitant]
     Active Substance: EVEROLIMUS
  3. ZORTRESS [Concomitant]
     Active Substance: EVEROLIMUS
  4. TAXOTERE [Suspect]
     Active Substance: DOCETAXEL
     Indication: BREAST CANCER FEMALE
     Dosage: 126 MG,Q3W
     Route: 042
     Dates: start: 20141112, end: 20141112
  5. WELCHOL [Concomitant]
     Active Substance: COLESEVELAM HYDROCHLORIDE
     Dosage: UNK UNK,UNK
     Route: 065
  6. GLIPIZIDE. [Concomitant]
     Active Substance: GLIPIZIDE
     Dosage: UNK UNK,UNK
     Route: 065
     Dates: start: 2000
  7. AROMASIN [Concomitant]
     Active Substance: EXEMESTANE
     Dosage: UNK UNK,UNK
     Route: 065
     Dates: start: 201506
  8. DOXYCYCLINE HYDROCHLORIDE [Concomitant]
     Active Substance: DOXYCYCLINE HYDROCHLORIDE
  9. GLUCOPHAGE [Concomitant]
     Active Substance: METFORMIN HYDROCHLORIDE
     Dosage: UNK UNK,UNK
     Route: 065
     Dates: start: 1998
  10. VALSARTAN. [Concomitant]
     Active Substance: VALSARTAN
     Dosage: UNK UNK,UNK
     Route: 065
  11. JANUVIA [Concomitant]
     Active Substance: SITAGLIPTIN PHOSPHATE
     Dosage: UNK UNK,UNK
     Route: 065
  12. FLUOROURACIL. [Concomitant]
     Active Substance: FLUOROURACIL
  13. TAXOTERE [Suspect]
     Active Substance: DOCETAXEL
     Dosage: 126 MG,Q3W
     Route: 042
     Dates: start: 20150116, end: 20150116
  14. TAXOTERE [Suspect]
     Active Substance: DOCETAXEL
     Dosage: 126 MG,Q3W
     Route: 051
     Dates: start: 20150211, end: 20150211
  15. ARIMIDEX [Concomitant]
     Active Substance: ANASTROZOLE
     Dosage: UNK UNK,UNK
     Route: 065
     Dates: start: 201111, end: 201505
  16. ADRIAMYCIN [Concomitant]
     Active Substance: DOXORUBICIN HYDROCHLORIDE

REACTIONS (5)
  - Alopecia [Recovering/Resolving]
  - Psychological trauma [Unknown]
  - Quality of life decreased [Unknown]
  - Emotional distress [Unknown]
  - Anxiety [Unknown]

NARRATIVE: CASE EVENT DATE: 20150616
